FAERS Safety Report 9580766 (Version 1)
Quarter: 2013Q4

REPORT INFORMATION
  Report Type: Spontaneous
  Country: US (occurrence: US)
  Receive Date: 20131002
  Receipt Date: 20131002
  Transmission Date: 20140711
  Serious: Yes (Hospitalization, Disabling, Other)
  Sender: FDA-Public Use
  Company Number: US-PURDUE-USA-2013-0106891

PATIENT
  Sex: Male
  Weight: 68.27 kg

DRUGS (11)
  1. OXYCONTIN (NDA 22-272) [Suspect]
     Indication: INTERVERTEBRAL DISC PROTRUSION
     Dosage: 30 MG, TID
     Route: 048
     Dates: start: 2008
  2. OXYCONTIN (NDA 22-272) [Suspect]
     Indication: SPINAL FUSION SURGERY
     Dosage: 20 MG, TID
     Route: 048
     Dates: start: 2013
  3. OXYCONTIN (NDA 22-272) [Suspect]
     Indication: SHOULDER OPERATION
  4. OXYCONTIN (NDA 22-272) [Suspect]
     Indication: MENISCUS OPERATION
  5. OXYCONTIN (NDA 22-272) [Suspect]
     Indication: PAIN
  6. OXYCODONE HYDROCHLORIDE (SIMILAR TO NDA 22-272) [Suspect]
     Indication: INTERVERTEBRAL DISC PROTRUSION
     Dosage: UNK, TID
     Route: 048
  7. OXYCODONE HYDROCHLORIDE (SIMILAR TO NDA 22-272) [Suspect]
     Indication: SPINAL FUSION SURGERY
     Dosage: 15 MG, TID
     Route: 048
  8. OXYCODONE HYDROCHLORIDE (SIMILAR TO NDA 22-272) [Suspect]
     Indication: SHOULDER OPERATION
  9. OXYCODONE HYDROCHLORIDE (SIMILAR TO NDA 22-272) [Suspect]
     Indication: MENISCUS OPERATION
  10. OMEPRAZOLE [Concomitant]
     Indication: DIVERTICULITIS
     Dosage: UNK
  11. OMEPRAZOLE [Concomitant]
     Indication: GASTRIC HAEMORRHAGE

REACTIONS (9)
  - Cerebrovascular accident [Unknown]
  - Hospitalisation [Unknown]
  - Spinal fracture [Unknown]
  - Diverticulitis [Unknown]
  - Haemorrhage [Unknown]
  - Unevaluable event [Unknown]
  - Intentional drug misuse [Unknown]
  - Tremor [Unknown]
  - Hyperhidrosis [Unknown]
